FAERS Safety Report 24790373 (Version 1)
Quarter: 2024Q4

REPORT INFORMATION
  Report Type: Spontaneous
  Country: US (occurrence: US)
  Receive Date: 20241230
  Receipt Date: 20241230
  Transmission Date: 20250115
  Serious: Yes (Hospitalization)
  Sender: JOHNSON AND JOHNSON
  Company Number: US-JNJFOC-20241244912

PATIENT
  Sex: Female

DRUGS (1)
  1. TALQUETAMAB [Suspect]
     Active Substance: TALQUETAMAB
     Indication: Plasma cell myeloma refractory
     Route: 058

REACTIONS (5)
  - Cellulitis [Unknown]
  - Skin exfoliation [Unknown]
  - Onycholysis [Unknown]
  - Rash pruritic [Unknown]
  - Taste disorder [Unknown]
